FAERS Safety Report 15798411 (Version 6)
Quarter: 2019Q1

REPORT INFORMATION
  Report Type: Report from Study
  Country: BR (occurrence: BR)
  Receive Date: 20190108
  Receipt Date: 20190318
  Transmission Date: 20190417
  Serious: Yes (Hospitalization)
  Sender: FDA-Public Use
  Company Number: PHHY2019BR000747

PATIENT
  Age: 59 Year
  Sex: Male
  Weight: 65 kg

DRUGS (4)
  1. COSENTYX [Suspect]
     Active Substance: SECUKINUMAB
     Indication: PSORIATIC ARTHROPATHY
     Dosage: 300 MG, QMO
     Route: 058
     Dates: start: 20180616
  2. COSENTYX [Suspect]
     Active Substance: SECUKINUMAB
     Dosage: 150 MG, QMO
     Route: 058
     Dates: start: 20180807
  3. COSENTYX [Suspect]
     Active Substance: SECUKINUMAB
     Dosage: 300 MG, QMO
     Route: 058
     Dates: start: 201901
  4. COSENTYX [Suspect]
     Active Substance: SECUKINUMAB
     Dosage: 300 MG, QMO
     Route: 058
     Dates: start: 20181210

REACTIONS (11)
  - Dyspnoea [Recovering/Resolving]
  - Weight decreased [Not Recovered/Not Resolved]
  - Hepatitis viral [Recovering/Resolving]
  - Weight fluctuation [Not Recovered/Not Resolved]
  - Malaise [Recovering/Resolving]
  - Syncope [Not Recovered/Not Resolved]
  - Ascites [Recovering/Resolving]
  - Acute kidney injury [Recovering/Resolving]
  - Cardiac failure congestive [Recovering/Resolving]
  - Lung disorder [Recovering/Resolving]
  - Liver disorder [Recovering/Resolving]

NARRATIVE: CASE EVENT DATE: 201901
